FAERS Safety Report 12025123 (Version 1)
Quarter: 2016Q1

REPORT INFORMATION
  Report Type: Report from Study
  Country: US (occurrence: US)
  Receive Date: 20160206
  Receipt Date: 20160206
  Transmission Date: 20160526
  Serious: No
  Sender: FDA-Public Use
  Company Number: US-ABBVIE-15K-163-1481332-00

PATIENT
  Age: 54 Year
  Sex: Female
  Weight: 59.02 kg

DRUGS (3)
  1. LISINOPRIL. [Concomitant]
     Active Substance: LISINOPRIL
     Indication: HYPERTENSION
  2. TYLENOL [Concomitant]
     Active Substance: ACETAMINOPHEN
     Indication: PRODUCT USED FOR UNKNOWN INDICATION
  3. HUMIRA [Suspect]
     Active Substance: ADALIMUMAB
     Indication: CROHN^S DISEASE
     Dosage: NOT RESTARTED MEDICATION YET, THIS SATURDAY
     Route: 058
     Dates: start: 201010, end: 20150912

REACTIONS (3)
  - Escherichia infection [Recovered/Resolved]
  - Vulvovaginal pain [Recovered/Resolved]
  - Proctalgia [Recovered/Resolved]

NARRATIVE: CASE EVENT DATE: 201509
